FAERS Safety Report 8854650 (Version 1)
Quarter: 2012Q4

REPORT INFORMATION
  Report Type: 
  Country: CN (occurrence: CN)
  Receive Date: 20121023
  Receipt Date: 20121023
  Transmission Date: 20130627
  Serious: Yes (Other)
  Sender: FDA-Public Use
  Company Number: CN-BAYER-2012-108671

PATIENT
  Age: 53 Year
  Sex: Male

DRUGS (2)
  1. AVELOX [Suspect]
     Indication: PNEUMONIA
     Dosage: 0.4 g, QD
     Route: 048
  2. HERBALS [Interacting]
     Dosage: 0.9 g, ONCE
     Route: 048

REACTIONS (7)
  - Alcohol intolerance [Recovering/Resolving]
  - Restlessness [Recovering/Resolving]
  - Chest discomfort [Recovering/Resolving]
  - Dyspnoea [Recovering/Resolving]
  - Flushing [Recovering/Resolving]
  - Nodal arrhythmia [Recovering/Resolving]
  - Body temperature increased [None]
